FAERS Safety Report 21842379 (Version 1)
Quarter: 2023Q1

REPORT INFORMATION
  Report Type: Spontaneous
  Country: US (occurrence: None)
  Receive Date: 20230110
  Receipt Date: 20230110
  Transmission Date: 20230417
  Serious: No
  Sender: FDA-Public Use
  Company Number: 2023A000590

PATIENT
  Sex: Female

DRUGS (2)
  1. FARXIGA [Suspect]
     Active Substance: DAPAGLIFLOZIN PROPANEDIOL
     Indication: Chronic kidney disease
     Route: 048
  2. RYBELSUS [Concomitant]
     Active Substance: SEMAGLUTIDE

REACTIONS (6)
  - Pruritus [Recovered/Resolved]
  - Diabetes mellitus [Not Recovered/Not Resolved]
  - Rash [Recovered/Resolved]
  - Urinary tract infection [Recovered/Resolved]
  - Skin disorder [Recovered/Resolved]
  - Glycosylated haemoglobin abnormal [Recovering/Resolving]
